FAERS Safety Report 6156558-8 (Version None)
Quarter: 2009Q2

REPORT INFORMATION
  Report Type: 
  Country: None (occurrence: None)
  Receive Date: 20090413
  Receipt Date: 20090203
  Transmission Date: 20091009
  Serious: Yes (Other)
  Sender: FDA-Public Use
  Company Number: OPER20090025

PATIENT
  Sex: Male

DRUGS (1)
  1. OPANA ER [Suspect]
     Indication: BACK PAIN
     Dosage: 80 MG, FOUR TIMES DAILY

REACTIONS (1)
  - DRUG ABUSE [None]
